FAERS Safety Report 9138278 (Version 1)
Quarter: 2013Q1

REPORT INFORMATION
  Report Type: Report from Study
  Country: JP (occurrence: JP)
  Receive Date: 20130305
  Receipt Date: 20130305
  Transmission Date: 20140127
  Serious: Yes (Hospitalization)
  Sender: FDA-Public Use
  Company Number: JP-009507513-1212JPN001939

PATIENT
  Age: 58 Year
  Sex: Male
  Weight: 53.2 kg

DRUGS (18)
  1. ASENAPINE MALEATE-SCHIZOPHRENIA [Suspect]
     Indication: SCHIZOPHRENIA
     Dosage: 5 MG, BID
     Route: 060
     Dates: start: 20120112, end: 20121121
  2. ASENAPINE MALEATE-SCHIZOPHRENIA [Suspect]
     Dosage: 10 MG, BID
     Route: 060
     Dates: start: 20121121, end: 20130109
  3. BIPERIDEN HYDROCHLORIDE [Concomitant]
     Indication: EXTRAPYRAMIDAL DISORDER
     Dosage: 1 MG, TID
     Route: 048
     Dates: start: 20110311
  4. CLONAZEPAM [Concomitant]
     Indication: SCHIZOPHRENIA
     Dosage: 1 MG, TID
     Route: 048
     Dates: start: 20110415
  5. MAGNESIUM OXIDE [Concomitant]
     Indication: CONSTIPATION
     Dosage: 330 MG, TID
     Route: 048
     Dates: start: 20110415
  6. FLUNITRAZEPAM [Concomitant]
     Indication: INSOMNIA
     Dosage: 2 MG, QD
     Route: 048
     Dates: start: 20110415, end: 20130219
  7. HYDROXYZINE HYDROCHLORIDE [Concomitant]
     Indication: INSOMNIA
     Dosage: 25 MG, QD
     Route: 048
     Dates: start: 20110415, end: 20130129
  8. SENNOSIDES [Concomitant]
     Indication: CONSTIPATION
     Dosage: 36 MG, QD
     Route: 048
     Dates: start: 20110630
  9. DISTIGMINE BROMIDE [Concomitant]
     Indication: DYSURIA
     Dosage: 5 MG, QD
     Route: 048
     Dates: start: 20111005
  10. ZOTEPINE [Concomitant]
     Indication: SCHIZOPHRENIA
     Dosage: 250 MG, QID
     Dates: end: 20121018
  11. ZOTEPINE [Concomitant]
     Dosage: 175 MG, QID
     Route: 048
     Dates: start: 20121019, end: 20130129
  12. ZOTEPINE [Concomitant]
     Dosage: 100 MG, QD
     Route: 048
     Dates: start: 20130130, end: 20130205
  13. LOXOPROFEN [Concomitant]
     Indication: OSTEOARTHRITIS
     Dosage: 60 MG, TID
     Route: 048
     Dates: start: 20120611
  14. TEPRENONE [Concomitant]
     Indication: GASTROINTESTINAL MUCOSAL DISORDER
     Dosage: 50 MG, TID
     Route: 048
     Dates: start: 20120611
  15. ESTAZOLAM [Concomitant]
     Indication: INSOMNIA
     Dosage: 2 MG, QD
     Route: 048
     Dates: start: 20120813
  16. SALICYLIC ACID [Concomitant]
     Indication: HYPERKERATOSIS
     Dosage: 1 DF, QD
     Route: 062
     Dates: start: 20121019, end: 20121019
  17. BIFONAZOLE [Concomitant]
     Indication: TINEA INFECTION
     Dosage: UNK, PRN
     Route: 062
     Dates: start: 20121026, end: 20121029
  18. KETOPROFEN [Concomitant]
     Indication: OSTEOARTHRITIS
     Dosage: UNK, PRN
     Route: 062
     Dates: start: 20121026, end: 20121029

REACTIONS (1)
  - Schizophrenia [Not Recovered/Not Resolved]
